FAERS Safety Report 6679526-6 (Version None)
Quarter: 2010Q2

REPORT INFORMATION
  Report Type: 
  Country: None (occurrence: None)
  Receive Date: 20100413
  Receipt Date: 20100331
  Transmission Date: 20101027
  Serious: Yes (Other)
  Sender: FDA-Public Use
  Company Number: PHHY2010GB22198

PATIENT
  Sex: Male

DRUGS (1)
  1. CLOZARIL [Suspect]
     Indication: SCHIZOPHRENIA
     Dosage: 13 MG/DAY
     Dates: start: 20100225, end: 20100311

REACTIONS (3)
  - GAIT DISTURBANCE [None]
  - LETHARGY [None]
  - URINARY TRACT INFECTION [None]
